FAERS Safety Report 22606611 (Version 2)
Quarter: 2023Q2

REPORT INFORMATION
  Report Type: Spontaneous
  Country: GB (occurrence: GB)
  Receive Date: 20230615
  Receipt Date: 20230629
  Transmission Date: 20230721
  Serious: Yes (Death, Other)
  Sender: FDA-Public Use
  Company Number: GB-MYLANLABS-2023M1062956

PATIENT
  Sex: Female

DRUGS (6)
  1. CLOZARIL [Suspect]
     Active Substance: CLOZAPINE
     Indication: Schizophrenia
     Dosage: 400 MILLIGRAM
     Route: 048
     Dates: start: 20090707
  2. CLOZARIL [Suspect]
     Active Substance: CLOZAPINE
     Indication: Bipolar disorder
     Dosage: 200 MILLIGRAM, QD
     Route: 048
     Dates: start: 20230606, end: 20230611
  3. LITHIUM [Concomitant]
     Active Substance: LITHIUM
     Indication: Bipolar disorder
     Dosage: 200 MILLIGRAM, QD
     Route: 048
     Dates: start: 20230314, end: 20230611
  4. LAMOTRIGINE [Concomitant]
     Active Substance: LAMOTRIGINE
     Indication: Bipolar disorder
     Dosage: 300 MILLIGRAM (100MG MORNING/200MG AT NIGHT)
     Route: 048
     Dates: start: 2018, end: 20230611
  5. LEVOTHYROXINE [Concomitant]
     Active Substance: LEVOTHYROXINE
     Dosage: 25 MICROGRAM, QD
     Route: 048
     Dates: start: 2011, end: 20230611
  6. LORAZEPAM [Concomitant]
     Active Substance: LORAZEPAM
     Dosage: 2 MILLIGRAM (AS REQUIRED FOR AGITATION, MAXIMUM 8MG IN 24HOURS ( RARELY USED)
     Route: 048
     Dates: start: 2018, end: 20230611

REACTIONS (6)
  - Breast cancer [Fatal]
  - Metastases to lung [Unknown]
  - Metastases to bone [Unknown]
  - Spinal cord compression [Unknown]
  - Dysphagia [Unknown]
  - Sedation [Unknown]

NARRATIVE: CASE EVENT DATE: 20230101
